FAERS Safety Report 8480404-0 (Version None)
Quarter: 2012Q3

REPORT INFORMATION
  Report Type: 
  Country: None (occurrence: None)
  Receive Date: 20120702
  Receipt Date: 20120626
  Transmission Date: 20120928
  Serious: Yes (Hospitalization)
  Sender: FDA-Public Use
  Company Number: GB-ROCHE-1082220

PATIENT
  Sex: Female
  Weight: 67 kg

DRUGS (2)
  1. MABTHERA [Suspect]
     Indication: PRODUCT USED FOR UNKNOWN INDICATION
     Dosage: LAST DOSE PRIOR TO SAE WAS ON 10/JUN/2011
     Dates: start: 20090917
  2. METHOTREXATE [Concomitant]

REACTIONS (1)
  - CHOLECYSTITIS [None]
